FAERS Safety Report 21507235 (Version 1)
Quarter: 2022Q4

REPORT INFORMATION
  Report Type: Spontaneous
  Country: US (occurrence: None)
  Receive Date: 20221025
  Receipt Date: 20221025
  Transmission Date: 20230112
  Serious: No
  Sender: FDA-Public Use
  Company Number: None

PATIENT
  Age: 69 Year
  Sex: Female
  Weight: 108.86 kg

DRUGS (1)
  1. CIMZIA [Suspect]
     Active Substance: CERTOLIZUMAB PEGOL
     Indication: Rheumatoid arthritis
     Dosage: INJECT 400MG (2 VIALS ) SUBCUTANEOUSLY AT WEEKS 0,2, \TT4 4  AS DIRECTED?
     Route: 058
     Dates: start: 202003

REACTIONS (4)
  - Urinary tract infection [None]
  - Cholecystitis infective [None]
  - Therapeutic product effect decreased [None]
  - Pain [None]
